FAERS Safety Report 14400237 (Version 4)
Quarter: 2019Q4

REPORT INFORMATION
  Report Type: Spontaneous
  Country: US (occurrence: US)
  Receive Date: 20180117
  Receipt Date: 20191211
  Transmission Date: 20200122
  Serious: Yes (Death, Hospitalization, Other)
  Sender: FDA-Public Use
  Company Number: US-JNJFOC-20171133391

PATIENT
  Age: 79 Year
  Sex: Male

DRUGS (2)
  1. XARELTO [Suspect]
     Active Substance: RIVAROXABAN
     Indication: DEEP VEIN THROMBOSIS
  2. XARELTO [Suspect]
     Active Substance: RIVAROXABAN
     Indication: PULMONARY EMBOLISM
     Dosage: 15 MG TWICE DAILY FOR 01 TO 03 WEEKS AND 20 MG ONCE DAILY AFTER 04TH WEEK
     Route: 048
     Dates: start: 20160330, end: 20160506

REACTIONS (7)
  - Pericardial haemorrhage [Recovered/Resolved]
  - Pericarditis [Recovering/Resolving]
  - Haemothorax [Recovering/Resolving]
  - Coagulopathy [Recovering/Resolving]
  - Gastrointestinal haemorrhage [Unknown]
  - Acute kidney injury [Recovered/Resolved]
  - Cardiac tamponade [Recovering/Resolving]

NARRATIVE: CASE EVENT DATE: 201605
